FAERS Safety Report 10158572 (Version 1)
Quarter: 2014Q2

REPORT INFORMATION
  Report Type: Spontaneous
  Country: US (occurrence: US)
  Receive Date: 20140507
  Receipt Date: 20140507
  Transmission Date: 20141212
  Serious: Yes (Other)
  Sender: FDA-Public Use
  Company Number: PHHY2014US052513

PATIENT
  Sex: Male

DRUGS (2)
  1. VORICONAZOLE [Suspect]
     Indication: FUNGAL INFECTION
     Dosage: 200 MG, BID
  2. PREDNISONE [Suspect]
     Indication: PULMONARY SARCOIDOSIS
     Dosage: 60 MG, PER DAY
     Dates: start: 2008

REACTIONS (5)
  - Melanocytic hyperplasia [Unknown]
  - Lentigo [Unknown]
  - Skin hyperpigmentation [Unknown]
  - Skin lesion [Unknown]
  - Macule [Unknown]
